FAERS Safety Report 18440036 (Version 1)
Quarter: 2020Q4

REPORT INFORMATION
  Report Type: Spontaneous
  Country: US (occurrence: US)
  Receive Date: 20201028
  Receipt Date: 20201028
  Transmission Date: 20210114
  Serious: Yes (Hospitalization)
  Sender: FDA-Public Use
  Company Number: None

PATIENT
  Sex: Male

DRUGS (1)
  1. TETRABENAZINE 25MG SUN PHARMACEUTICAL [Suspect]
     Active Substance: TETRABENAZINE
     Indication: PROCEDURAL PAIN
     Route: 048
     Dates: start: 20200826

REACTIONS (4)
  - Tremor [None]
  - Therapy interrupted [None]
  - Blood creatinine increased [None]
  - Hallucination [None]
